FAERS Safety Report 22297824 (Version 1)
Quarter: 2023Q2

REPORT INFORMATION
  Report Type: Spontaneous
  Country: US (occurrence: US)
  Receive Date: 20230509
  Receipt Date: 20230509
  Transmission Date: 20230722
  Serious: No
  Sender: FDA-Public Use
  Company Number: US-APOTEX-2022AP014119

PATIENT
  Sex: Female

DRUGS (2)
  1. IPRATROPIUM BROMIDE [Suspect]
     Active Substance: IPRATROPIUM BROMIDE\IPRATROPIUM BROMIDE ANHYDROUS
     Indication: Rhinitis allergic
     Dosage: UNK UNK, BID (2 SPRAY EACH NOSTRIL IN MORNING AND AT NIGHT)
     Route: 045
  2. IPRATROPIUM BROMIDE [Suspect]
     Active Substance: IPRATROPIUM BROMIDE\IPRATROPIUM BROMIDE ANHYDROUS
     Indication: Sinus disorder
     Dosage: UNK UNK, BID (2 SPRAY EACH NOSTRIL IN MORNING AND AT NIGHT)
     Route: 045
     Dates: start: 20220912

REACTIONS (5)
  - Extra dose administered [Unknown]
  - Product delivery mechanism issue [Unknown]
  - Wrong technique in device usage process [Unknown]
  - No adverse event [Unknown]
  - Device defective [Unknown]
